FAERS Safety Report 5690615-5 (Version None)
Quarter: 2008Q1

REPORT INFORMATION
  Report Type: 
  Country: None (occurrence: None)
  Receive Date: 20080331
  Receipt Date: 20080331
  Transmission Date: 20080703
  Serious: Yes (Life-Threatening, Hospitalization, Other)
  Sender: FDA-Public Use
  Company Number: None

PATIENT
  Age: 51 Year
  Sex: Male
  Weight: 81.6475 kg

DRUGS (1)
  1. VYTORIN [Suspect]
     Indication: TYPE IIA HYPERLIPIDAEMIA
     Dosage: 10/40 1 DAILY PO
     Route: 048
     Dates: start: 20050601, end: 20080129

REACTIONS (17)
  - CHEST PAIN [None]
  - DEHYDRATION [None]
  - DIARRHOEA [None]
  - DYSPNOEA [None]
  - FATIGUE [None]
  - GALLBLADDER DISORDER [None]
  - GALLBLADDER PERFORATION [None]
  - HALLUCINATION [None]
  - HEPATIC FIBROSIS [None]
  - HEPATIC NECROSIS [None]
  - HEPATIC STEATOSIS [None]
  - HEPATITIS CHRONIC ACTIVE [None]
  - NAUSEA [None]
  - PNEUMONIA [None]
  - RESPIRATORY ARREST [None]
  - SYNCOPE [None]
  - VENTRICULAR FIBRILLATION [None]
